FAERS Safety Report 16934213 (Version 1)
Quarter: 2019Q4

REPORT INFORMATION
  Report Type: Spontaneous
  Country: US (occurrence: US)
  Receive Date: 20191018
  Receipt Date: 20191018
  Transmission Date: 20200122
  Serious: Yes (Other)
  Sender: FDA-Public Use
  Company Number: US-ABBVIE-19K-163-2966188-00

PATIENT
  Age: 59 Year
  Sex: Female
  Weight: 100.33 kg

DRUGS (1)
  1. SYNTHROID [Suspect]
     Active Substance: LEVOTHYROXINE SODIUM
     Indication: THYROID DISORDER
     Route: 048

REACTIONS (5)
  - Burning mouth syndrome [Unknown]
  - Dyspepsia [Unknown]
  - Product colour issue [Unknown]
  - Headache [Unknown]
  - Product physical issue [Unknown]

NARRATIVE: CASE EVENT DATE: 201910
